FAERS Safety Report 9455499 (Version 3)
Quarter: 2014Q1

REPORT INFORMATION
  Report Type: Spontaneous
  Country: US (occurrence: US)
  Receive Date: 20130813
  Receipt Date: 20140205
  Transmission Date: 20141002
  Serious: Yes (Hospitalization, Other)
  Sender: FDA-Public Use
  Company Number: US-BAYER-2013-096808

PATIENT
  Age: 27 Year
  Sex: Female
  Weight: 45.35 kg

DRUGS (1)
  1. MIRENA [Suspect]
     Indication: CONTRACEPTION
     Dosage: 20 MCG/24HR, CONT
     Route: 015
     Dates: start: 20100113, end: 20110829

REACTIONS (19)
  - Uterine perforation [None]
  - Device dislocation [None]
  - Device issue [None]
  - Medical device discomfort [None]
  - Abdominal pain [None]
  - Back pain [None]
  - Internal injury [None]
  - Injury [None]
  - Ectopic pregnancy with contraceptive device [Recovered/Resolved]
  - Drug ineffective [None]
  - Ruptured ectopic pregnancy [None]
  - Ovarian rupture [None]
  - Pelvic haemorrhage [None]
  - Infertility female [None]
  - Dyspareunia [None]
  - Emotional distress [None]
  - Fear of disease [None]
  - Anxiety [None]
  - Depression [None]
